FAERS Safety Report 4621749-1 (Version None)
Quarter: 2005Q1

REPORT INFORMATION
  Report Type: 
  Country: None (occurrence: None)
  Receive Date: 20050329
  Receipt Date: 20050324
  Transmission Date: 20050727
  Serious: Yes (Other)
  Sender: FDA-Public Use
  Company Number: GB-MERCK-0503USA04322

PATIENT
  Age: 73 Year
  Sex: Female
  Weight: 41 kg

DRUGS (1)
  1. PRINIVIL [Suspect]
     Indication: VENTRICULAR HYPERTROPHY
     Route: 048
     Dates: start: 20050128, end: 20050209

REACTIONS (6)
  - DEPRESSED MOOD [None]
  - DIZZINESS [None]
  - INSOMNIA [None]
  - NIGHTMARE [None]
  - PARAESTHESIA [None]
  - RHINITIS [None]
